FAERS Safety Report 14673102 (Version 1)
Quarter: 2018Q1

REPORT INFORMATION
  Report Type: Spontaneous
  Country: US (occurrence: US)
  Receive Date: 20180322
  Receipt Date: 20180322
  Transmission Date: 20180509
  Serious: Yes (Hospitalization)
  Sender: FDA-Public Use
  Company Number: None

PATIENT
  Age: 60 Year
  Sex: Female

DRUGS (16)
  1. CAPECITABINE 500MG [Suspect]
     Active Substance: CAPECITABINE
     Indication: NEOPLASM MALIGNANT
     Dosage: FREQUENCY?AM AND PM
     Route: 048
     Dates: start: 20171010
  2. MULTI-VITAMIN [Concomitant]
     Active Substance: .ALPHA.-TOCOPHEROL ACETATE, DL-\ASCORBIC ACID\CYANOCOBALAMIN\FLUORIDE ION\FOLIC ACID\NIACIN\PYRIDOXINE\RIBOFLAVIN\THIAMINE\VITAMIN A\VITAMIN D
  3. VITAMIN C [Concomitant]
     Active Substance: ASCORBIC ACID
  4. BENZTROPINE. [Concomitant]
     Active Substance: BENZTROPINE
  5. FERROUS SULFATE. [Concomitant]
     Active Substance: FERROUS SULFATE
  6. PREDNISONE. [Concomitant]
     Active Substance: PREDNISONE
  7. VITAMIN B12 [Concomitant]
     Active Substance: CYANOCOBALAMIN
  8. ACYCLOVIR. [Concomitant]
     Active Substance: ACYCLOVIR
  9. AMANTADINE. [Suspect]
     Active Substance: AMANTADINE HYDROCHLORIDE
  10. HYDROXYZA HCL [Concomitant]
  11. CARVEDILOL FAMOTIDINE [Concomitant]
  12. AMOXICILLIN. [Concomitant]
     Active Substance: AMOXICILLIN
  13. ANASTROZOLE. [Concomitant]
     Active Substance: ANASTROZOLE
  14. HALOPERIDOL. [Concomitant]
     Active Substance: HALOPERIDOL
  15. VITAMIN D3 [Concomitant]
     Active Substance: CHOLECALCIFEROL
  16. BIOTIN [Concomitant]
     Active Substance: BIOTIN

REACTIONS (1)
  - Hospitalisation [None]

NARRATIVE: CASE EVENT DATE: 20180221
